FAERS Safety Report 10908472 (Version 1)
Quarter: 2015Q1

REPORT INFORMATION
  Report Type: Spontaneous
  Country: US (occurrence: None)
  Receive Date: 20150128
  Receipt Date: 20150128
  Transmission Date: 20150721
  Serious: No
  Sender: FDA-Public Use
  Company Number: 2014TUS010363

PATIENT
  Age: 46 Year
  Sex: Female

DRUGS (2)
  1. BRINTELLIX [Suspect]
     Active Substance: VORTIOXETINE HYDROBROMIDE
     Indication: MAJOR DEPRESSION
     Route: 048
     Dates: start: 20141012
  2. VALIUM [Concomitant]
     Active Substance: DIAZEPAM

REACTIONS (1)
  - Pruritus [None]

NARRATIVE: CASE EVENT DATE: 20141018
